FAERS Safety Report 9850744 (Version 2)
Quarter: 2014Q1

REPORT INFORMATION
  Report Type: Spontaneous
  Country: IT (occurrence: IT)
  Receive Date: 20140128
  Receipt Date: 20140325
  Transmission Date: 20141002
  Serious: Yes (Hospitalization, Other)
  Sender: FDA-Public Use
  Company Number: IT-PFIZER INC-2014023841

PATIENT
  Age: 43 Year
  Sex: Female

DRUGS (2)
  1. TAVOR [Suspect]
     Dosage: 8 MG, TOTAL
     Route: 048
     Dates: start: 20140120, end: 20140120
  2. HALCION [Suspect]
     Dosage: 1500 UG, TOTAL
     Route: 048
     Dates: start: 20140120, end: 20140120

REACTIONS (5)
  - Overdose [Unknown]
  - Intentional self-injury [Recovered/Resolved]
  - Agitation [Recovered/Resolved]
  - Speech disorder [Recovered/Resolved]
  - Drug abuse [Unknown]
